FAERS Safety Report 8496358-7 (Version None)
Quarter: 2012Q2

REPORT INFORMATION
  Report Type: 
  Country: None (occurrence: None)
  Receive Date: 20120405
  Receipt Date: 20100414
  Transmission Date: 20120825
  Serious: Yes (Hospitalization)
  Sender: FDA-Public Use
  Company Number: PHHY2010US21854

PATIENT
  Age: 56 Year
  Sex: Female

DRUGS (1)
  1. RECLAST [Suspect]
     Dosage: 5 MG PER YEAR, INTRAVENOUS
     Route: 042
     Dates: start: 20100405

REACTIONS (4)
  - PYREXIA [None]
  - ASTHENIA [None]
  - PAIN [None]
  - PALPITATIONS [None]
